FAERS Safety Report 5825771-9 (Version None)
Quarter: 2008Q3

REPORT INFORMATION
  Report Type: 
  Country: None (occurrence: None)
  Receive Date: 20080728
  Receipt Date: 20080728
  Transmission Date: 20090109
  Serious: Yes (Life-Threatening)
  Sender: FDA-Public Use
  Company Number: None

PATIENT
  Sex: Female

DRUGS (1)
  1. DROTRECOGIN-ALFA [Suspect]
     Indication: URINARY TRACT INFECTION
     Dosage: 2 MG Q1H IV
     Route: 042
     Dates: start: 20080527

REACTIONS (7)
  - ANXIETY [None]
  - DISORIENTATION [None]
  - DYSPNOEA [None]
  - STRIDOR [None]
  - SWELLING FACE [None]
  - SWOLLEN TONGUE [None]
  - WHEEZING [None]
